FAERS Safety Report 12718000 (Version 2)
Quarter: 2016Q4

REPORT INFORMATION
  Report Type: Spontaneous
  Country: US (occurrence: US)
  Receive Date: 20160906
  Receipt Date: 20161123
  Transmission Date: 20170207
  Serious: Yes (Other)
  Sender: FDA-Public Use
  Company Number: US-SAOL THERAPEUTICS-2016SAO00221

PATIENT
  Sex: Male
  Weight: 45.9 kg

DRUGS (2)
  1. BACLOFEN. [Suspect]
     Active Substance: BACLOFEN
     Indication: MUSCLE SPASTICITY
     Dosage: 345 ?G, \DAY
     Dates: start: 20160928
  2. BACLOFEN. [Suspect]
     Active Substance: BACLOFEN
     Indication: CEREBRAL PALSY

REACTIONS (3)
  - Device occlusion [Recovered/Resolved]
  - Cyst [Unknown]
  - Implant site infection [Unknown]

NARRATIVE: CASE EVENT DATE: 2011
